FAERS Safety Report 5513240-5 (Version None)
Quarter: 2007Q4

REPORT INFORMATION
  Report Type: 
  Country: None (occurrence: None)
  Receive Date: 20071112
  Receipt Date: 20071106
  Transmission Date: 20080405
  Serious: Yes (Hospitalization)
  Sender: FDA-Public Use
  Company Number: US-ELI_LILLY_AND_COMPANY-US200710003618

PATIENT
  Age: 46 Year
  Sex: Female

DRUGS (5)
  1. CYMBALTA [Suspect]
     Indication: PAIN
     Dosage: 120 MG, UNK
     Route: 048
     Dates: start: 20060531, end: 20071012
  2. ASPIRIN [Concomitant]
  3. NASONEX [Concomitant]
  4. ASTHALIN [Concomitant]
  5. SKELAXIN [Concomitant]

REACTIONS (2)
  - ELECTROENCEPHALOGRAM ABNORMAL [None]
  - EPILEPSY [None]
